FAERS Safety Report 21306624 (Version 1)
Quarter: 2022Q3

REPORT INFORMATION
  Report Type: Spontaneous
  Country: FI (occurrence: FI)
  Receive Date: 20220908
  Receipt Date: 20220908
  Transmission Date: 20221026
  Serious: Yes (Death, Other)
  Sender: FDA-Public Use
  Company Number: FI-009507513-2209FIN002105

PATIENT
  Sex: Female

DRUGS (1)
  1. KEYTRUDA [Suspect]
     Active Substance: PEMBROLIZUMAB
     Indication: Cervix carcinoma
     Dosage: UNK, STRENGTH: 25 MG/ML CONCENTRATE FOR INFUSION

REACTIONS (2)
  - Graft versus host disease in gastrointestinal tract [Fatal]
  - Colitis [Fatal]

NARRATIVE: CASE EVENT DATE: 20220601
